FAERS Safety Report 4433841-5 (Version None)
Quarter: 2004Q3

REPORT INFORMATION
  Report Type: 
  Country: None (occurrence: None)
  Receive Date: 20040825
  Receipt Date: 20040816
  Transmission Date: 20050211
  Serious: Yes (Life-Threatening)
  Sender: FDA-Public Use
  Company Number: 6010045

PATIENT
  Age: 79 Year
  Sex: Male

DRUGS (2)
  1. CONCOR (BISOPROLOL) [Suspect]
     Indication: MYOCARDIAL ISCHAEMIA
     Route: 048
  2. MARCUMAR [Suspect]
     Indication: ATRIAL FIBRILLATION
     Route: 048

REACTIONS (6)
  - ACTIVATED PARTIAL THROMBOPLASTIN TIME PROLONGED [None]
  - APHASIA [None]
  - CEREBRAL HAEMORRHAGE [None]
  - HEMIPARESIS [None]
  - PROTHROMBIN TIME PROLONGED [None]
  - SOMNOLENCE [None]
